FAERS Safety Report 8772528 (Version 5)
Quarter: 2013Q3

REPORT INFORMATION
  Report Type: Spontaneous
  Country: US (occurrence: US)
  Receive Date: 20120905
  Receipt Date: 20130925
  Transmission Date: 20140515
  Serious: Yes (Hospitalization, Other)
  Sender: FDA-Public Use
  Company Number: US-JNJFOC-20120814614

PATIENT
  Sex: Male

DRUGS (2)
  1. REMICADE [Suspect]
     Indication: CROHN^S DISEASE
     Route: 042
  2. ASPIRIN [Suspect]
     Indication: PRODUCT USED FOR UNKNOWN INDICATION
     Route: 065

REACTIONS (6)
  - Carpal tunnel syndrome [Unknown]
  - Relapsing-remitting multiple sclerosis [Unknown]
  - Fibromyalgia [Unknown]
  - Amnesia [Recovered/Resolved]
  - Influenza like illness [Unknown]
  - Sinusitis [Unknown]
